FAERS Safety Report 17806859 (Version 4)
Quarter: 2020Q4

REPORT INFORMATION
  Report Type: Spontaneous
  Country: US (occurrence: US)
  Receive Date: 20200520
  Receipt Date: 20201209
  Transmission Date: 20210113
  Serious: No
  Sender: FDA-Public Use
  Company Number: US-PFIZER INC-2020199715

PATIENT
  Age: 50 Year
  Sex: Male

DRUGS (1)
  1. XELJANZ XR [Suspect]
     Active Substance: TOFACITINIB CITRATE
     Indication: PSORIATIC ARTHROPATHY
     Dosage: 11 MG, DAILY
     Route: 048
     Dates: start: 201910

REACTIONS (5)
  - Vomiting [Unknown]
  - Headache [Unknown]
  - Nausea [Recovering/Resolving]
  - Depression [Not Recovered/Not Resolved]
  - Pain [Unknown]
